FAERS Safety Report 7004952-5 (Version None)
Quarter: 2010Q3

REPORT INFORMATION
  Report Type: 
  Country: None (occurrence: None)
  Receive Date: 20100921
  Receipt Date: 20100915
  Transmission Date: 20110219
  Serious: Yes (Hospitalization)
  Sender: FDA-Public Use
  Company Number: JP-BRISTOL-MYERS SQUIBB COMPANY-15289648

PATIENT
  Age: 6 Decade
  Sex: Male

DRUGS (3)
  1. VIDEX [Suspect]
     Indication: HIV INFECTION
     Route: 048
  2. EFAVIRENZ [Suspect]
     Indication: HIV INFECTION
     Route: 048
  3. LOPINAVIR/RITONAVIR [Suspect]
     Indication: HIV INFECTION
     Route: 048

REACTIONS (1)
  - GLOMERULONEPHRITIS MEMBRANOUS [None]
